FAERS Safety Report 9746695 (Version 1)
Quarter: 2013Q4

REPORT INFORMATION
  Report Type: Spontaneous
  Country: JP (occurrence: JP)
  Receive Date: 20131211
  Receipt Date: 20131211
  Transmission Date: 20140711
  Serious: Yes (Other)
  Sender: FDA-Public Use
  Company Number: JP-BRISTOL-MYERS SQUIBB COMPANY-19909183

PATIENT
  Sex: 0

DRUGS (2)
  1. TAXOL INJ [Suspect]
     Route: 042
  2. HERCEPTIN [Suspect]

REACTIONS (4)
  - Road traffic accident [Unknown]
  - Spinal column injury [Unknown]
  - Hypoaesthesia [Unknown]
  - Musculoskeletal stiffness [Unknown]
